FAERS Safety Report 9852340 (Version 2)
Quarter: 2014Q2

REPORT INFORMATION
  Report Type: Spontaneous
  Country: US (occurrence: None)
  Receive Date: 20140127
  Receipt Date: 20140407
  Transmission Date: 20141212
  Serious: Yes (Hospitalization)
  Sender: FDA-Public Use
  Company Number: 2014-US-000434

PATIENT
  Age: 57 Year
  Sex: Female
  Weight: 94.3 kg

DRUGS (10)
  1. XYREM [Suspect]
     Indication: SLEEP DISORDER
     Route: 048
     Dates: start: 200711
  2. LISINOPRIL (LISINOPRIL) [Concomitant]
  3. HYDROCHLOROTHIAZIDE (HYDROCHLOROTHIAZIDE) [Concomitant]
  4. EFFEXOR XR (VENLAFAXINE HYDROCHLORIDE) (75 MILLIGRAM, CAPSULE) (VENLAFAXINE HYDROCHLORIDE) [Concomitant]
  5. CYMBALTA [Concomitant]
  6. LYRICA (PREGABALIN) [Concomitant]
  7. AZATHIOPRINE (AZATHIOPRINE) [Concomitant]
  8. ASPIRANGE (ACETYLSALICYLIC ACID, ASCORBIC ACID) [Concomitant]
  9. TRAMADOL (TRAMADOL HYDROCHLORIDE) [Concomitant]
  10. FISH OIL (FISH OIL) [Concomitant]

REACTIONS (5)
  - Knee arthroplasty [None]
  - Arthralgia [None]
  - Vitamin D decreased [None]
  - Blood cholesterol increased [None]
  - Off label use [None]
